FAERS Safety Report 8572529-6 (Version None)
Quarter: 2012Q3

REPORT INFORMATION
  Report Type: 
  Country: None (occurrence: None)
  Receive Date: 20120806
  Receipt Date: 20120727
  Transmission Date: 20120928
  Serious: Yes (Hospitalization, Other)
  Sender: FDA-Public Use
  Company Number: US-BAYER-2012-076709

PATIENT
  Age: 48 Year
  Sex: Female

DRUGS (6)
  1. VOLTAREN [Concomitant]
     Dosage: 75 MG, BID
     Dates: start: 20100630
  2. SYNTHROID [Concomitant]
     Dosage: 25 MCG DAILY
  3. LEVOTHYROXINE SODIUM [Concomitant]
     Dosage: 25 MCG
     Dates: start: 20100520
  4. YASMIN [Suspect]
  5. DROSPIRENONE AND ETHINYL ESTRADIOL [Suspect]
  6. LEVOTHYROXINE SODIUM [Concomitant]
     Dosage: UNK
     Dates: start: 20100731

REACTIONS (3)
  - CHOLELITHIASIS [None]
  - ACUTE MYOCARDIAL INFARCTION [None]
  - PULMONARY EMBOLISM [None]
